FAERS Safety Report 4947553-2 (Version None)
Quarter: 2006Q1

REPORT INFORMATION
  Report Type: 
  Country: None (occurrence: None)
  Receive Date: 20060314
  Receipt Date: 20060303
  Transmission Date: 20060701
  Serious: Yes (Hospitalization, Other)
  Sender: FDA-Public Use
  Company Number: 2006032752

PATIENT
  Age: 47 Year
  Sex: Male
  Weight: 117.028 kg

DRUGS (4)
  1. NORVASC [Suspect]
     Indication: HYPERTENSION
     Dosage: 20 MG (10 M, BID INTERVAL: EVERY DAY), ORAL
     Route: 048
     Dates: start: 20050101
  2. LIPITOR [Suspect]
     Indication: BLOOD CHOLESTEROL INCREASED
     Dosage: 10 MG (10 MG, QD INTERVAL: EVERY DAY), ORAL
     Route: 048
  3. ATENOLOL [Concomitant]
  4. VASOTEC [Concomitant]

REACTIONS (4)
  - BLOOD TRIGLYCERIDES INCREASED [None]
  - HYPERTENSION [None]
  - TRANSIENT ISCHAEMIC ATTACK [None]
  - TRIPLE VESSEL BYPASS GRAFT [None]
